FAERS Safety Report 9432224 (Version 3)
Quarter: 2013Q4

REPORT INFORMATION
  Report Type: Report from Study
  Country: BR (occurrence: BR)
  Receive Date: 20130731
  Receipt Date: 20131022
  Transmission Date: 20140711
  Serious: Yes (Other)
  Sender: FDA-Public Use
  Company Number: PHHY2013BR081099

PATIENT
  Sex: Female
  Weight: 97 kg

DRUGS (1)
  1. DIOVAN HCT [Suspect]
     Indication: HYPERTENSION
     Dosage: 1 DF, (320 MG VALS/ 25 MG HYDRO) ONCE A DAY IN THE MORNING

REACTIONS (2)
  - Vitamin D deficiency [Recovering/Resolving]
  - Blood pressure inadequately controlled [Recovering/Resolving]
